FAERS Safety Report 4768556-7 (Version None)
Quarter: 2005Q3

REPORT INFORMATION
  Report Type: 
  Country: None (occurrence: None)
  Receive Date: 20050913
  Receipt Date: 20050831
  Transmission Date: 20060218
  Serious: Yes (Hospitalization)
  Sender: FDA-Public Use
  Company Number: 2005105658

PATIENT
  Age: 86 Year
  Sex: Male
  Weight: 63.5036 kg

DRUGS (11)
  1. DETROL LA [Suspect]
     Indication: MICTURITION DISORDER
     Dosage: 4 MG (4 MG, 1 IN 1 D), ORAL
     Route: 048
     Dates: start: 20050415
  2. DETROL LA [Suspect]
     Indication: NEUROGENIC BLADDER
     Dosage: 4 MG (4 MG, 1 IN 1 D), ORAL
     Route: 048
     Dates: start: 20050415
  3. COUMADIN [Suspect]
     Indication: ILL-DEFINED DISORDER
     Dates: start: 20050101, end: 20050101
  4. ELAVIL [Concomitant]
  5. LANTUS [Concomitant]
  6. RESTORIL [Concomitant]
  7. LISINOPRIL [Concomitant]
  8. TOPROL (METOPROLOL) [Concomitant]
  9. ALDACTONE [Concomitant]
  10. LASIX [Concomitant]
  11. POTASSIUM CHLORIDE [Concomitant]

REACTIONS (5)
  - DEHYDRATION [None]
  - DRY MOUTH [None]
  - LIP DISORDER [None]
  - MOVEMENT DISORDER [None]
  - RASH MACULAR [None]
